FAERS Safety Report 7076425-5 (Version None)
Quarter: 2010Q4

REPORT INFORMATION
  Report Type: 
  Country: None (occurrence: None)
  Receive Date: 20101021
  Receipt Date: 20101015
  Transmission Date: 20110411
  Serious: Yes (Hospitalization)
  Sender: FDA-Public Use
  Company Number: 2010SP048262

PATIENT
  Age: 17 Year
  Sex: Female

DRUGS (11)
  1. REMERON [Suspect]
     Indication: MAJOR DEPRESSION
     Dosage: 15 MG;QD;PO, 30 MG;QD;PO
     Route: 048
     Dates: start: 20081216
  2. REMERON [Suspect]
     Indication: MAJOR DEPRESSION
     Dosage: 15 MG;QD;PO, 30 MG;QD;PO
     Route: 048
     Dates: start: 20090227
  3. SEROQUEL [Suspect]
     Indication: MAJOR DEPRESSION
     Dosage: 25 MG;TID;PO, 700 MG;PO, 2100 MG;ONCE;PO
     Route: 048
     Dates: start: 20081210
  4. SEROQUEL [Suspect]
     Indication: MAJOR DEPRESSION
     Dosage: 25 MG;TID;PO, 700 MG;PO, 2100 MG;ONCE;PO
     Route: 048
     Dates: start: 20090306
  5. SEROQUEL [Suspect]
     Indication: MAJOR DEPRESSION
     Dosage: 25 MG;TID;PO, 700 MG;PO, 2100 MG;ONCE;PO
     Route: 048
     Dates: start: 20090330
  6. NOZINAN [Concomitant]
  7. TEMESTA [Concomitant]
  8. DAFALGAN [Concomitant]
  9. MEFENACID [Concomitant]
  10. MOTILIUM [Concomitant]
  11. BEXIN [Concomitant]

REACTIONS (9)
  - ALTERED STATE OF CONSCIOUSNESS [None]
  - ANAEMIA [None]
  - HYPOKALAEMIA [None]
  - HYPOTENSION [None]
  - INCORRECT DOSE ADMINISTERED [None]
  - OFF LABEL USE [None]
  - SUICIDE ATTEMPT [None]
  - TACHYCARDIA [None]
  - TACHYPNOEA [None]
